FAERS Safety Report 9448537 (Version 1)
Quarter: 2013Q3

REPORT INFORMATION
  Report Type: Spontaneous
  Country: FR (occurrence: FR)
  Receive Date: 20130808
  Receipt Date: 20130808
  Transmission Date: 20140515
  Serious: Yes (Hospitalization)
  Sender: FDA-Public Use
  Company Number: FR-ELI_LILLY_AND_COMPANY-FR201308000177

PATIENT
  Age: 82 Year
  Sex: Male

DRUGS (7)
  1. FORSTEO [Suspect]
     Indication: OSTEOPOROSIS
     Dosage: 1 DF, UNK
     Route: 058
     Dates: start: 201301, end: 20130405
  2. IXPRIM [Suspect]
     Dosage: 1 DF, QD
     Route: 048
  3. SPIRONOLACTONE [Concomitant]
     Dosage: 1 DF, UNK
  4. ALTIZIDE [Concomitant]
     Dosage: 1 DF, QD
  5. PARACETAMOL [Concomitant]
     Dosage: 1 DF, UNK
  6. MACROGOL [Concomitant]
     Dosage: 1 DF, UNK
  7. LOCOID [Concomitant]

REACTIONS (2)
  - Oesophageal ulcer [Recovered/Resolved]
  - Melaena [Recovered/Resolved]
